FAERS Safety Report 12065768 (Version 1)
Quarter: 2016Q1

REPORT INFORMATION
  Report Type: Spontaneous
  Country: US (occurrence: US)
  Receive Date: 20160210
  Receipt Date: 20160210
  Transmission Date: 20160526
  Serious: No
  Sender: FDA-Public Use
  Company Number: US-ALLERGAN-1522374US

PATIENT
  Sex: Female

DRUGS (3)
  1. BOTOX [Suspect]
     Active Substance: ONABOTULINUMTOXINA
     Indication: SKIN WRINKLING
     Dosage: UNK UNK, SINGLE
     Route: 030
     Dates: start: 20150806, end: 20150806
  2. NARDIL [Concomitant]
     Active Substance: PHENELZINE SULFATE
  3. JUVEDERM [Concomitant]
     Active Substance: HYALURONIC ACID
     Indication: SKIN WRINKLING
     Dosage: 2 SYRINGES
     Dates: start: 20150806, end: 20150806

REACTIONS (3)
  - Eyelid ptosis [Unknown]
  - Facial asymmetry [Unknown]
  - Facial paralysis [Unknown]
